FAERS Safety Report 13242619 (Version 3)
Quarter: 2017Q2

REPORT INFORMATION
  Report Type: Report from Study
  Country: US (occurrence: US)
  Receive Date: 20170217
  Receipt Date: 20170616
  Transmission Date: 20170830
  Serious: Yes (Death, Hospitalization, Other)
  Sender: FDA-Public Use
  Company Number: US-PFIZER INC-2017024900

PATIENT
  Age: 57 Year
  Sex: Female

DRUGS (14)
  1. CAPOTEN [Concomitant]
     Active Substance: CAPTOPRIL
     Dosage: 6.25 MG, 3X/DAY
     Dates: start: 20160923, end: 20161017
  2. ATIVAN [Concomitant]
     Active Substance: LORAZEPAM
     Indication: ANXIETY
     Dosage: 0.5 MG, AS NEEDED (EVERY 6 HOURS)
     Route: 048
     Dates: end: 20161115
  3. LASIX [Concomitant]
     Active Substance: FUROSEMIDE
     Dosage: 20 MG, DAILY
     Route: 048
     Dates: start: 20160918, end: 20161017
  4. IRON [Concomitant]
     Active Substance: IRON
     Dosage: 325 MG, DAILY (325 (65 FE) MG)
     Route: 048
     Dates: end: 20170106
  5. COMPAZINE [Concomitant]
     Active Substance: PROCHLORPERAZINE MALEATE
     Indication: NAUSEA
     Dosage: 10 MG, AS NEEDED (EVERY 6 HOURS)
     Route: 048
  6. SUTENT [Suspect]
     Active Substance: SUNITINIB MALATE
     Indication: METASTATIC RENAL CELL CARCINOMA
     Dosage: 50 MG, CYCLIC (4 WEEKS ON, 1 WEEKS OFF)
     Route: 048
     Dates: start: 20160714, end: 20160912
  7. SUTENT [Suspect]
     Active Substance: SUNITINIB MALATE
     Dosage: 50 MG, CYCLIC (DAILY FOR 2 OF EVERY 3 WEEK CYCLE)
     Route: 048
     Dates: start: 20160714, end: 20160927
  8. COREG [Concomitant]
     Active Substance: CARVEDILOL
     Dosage: 3.125 MG, 2X/DAY (WITH MEALS)
     Route: 048
     Dates: start: 20160918, end: 20160930
  9. LANOXIN [Concomitant]
     Active Substance: DIGOXIN
     Dosage: 0.125 MG, DAILY
     Route: 048
     Dates: start: 20160918, end: 20161130
  10. NORCO [Concomitant]
     Active Substance: ACETAMINOPHEN\HYDROCODONE BITARTRATE
     Indication: PAIN
     Dosage: 1 DF, AS NEEDED [HYDROCODONE 7.5 MG/ACETAMINOPHEN 325MG] (EVERY 3 HOURS)
     Route: 048
     Dates: start: 20160918, end: 20161020
  11. NEXIUM [Concomitant]
     Active Substance: ESOMEPRAZOLE MAGNESIUM
     Indication: DYSPEPSIA
     Dosage: 20 MG, AS NEEDED (DAILY)
     Route: 048
     Dates: start: 20160721, end: 20161115
  12. ZOFRAN [Concomitant]
     Active Substance: ONDANSETRON HYDROCHLORIDE
     Indication: NAUSEA
     Dosage: 8 MG, AS NEEDED (EVERY 8 HOURS)
     Route: 048
     Dates: start: 20160719, end: 20161115
  13. SUTENT [Suspect]
     Active Substance: SUNITINIB MALATE
     Dosage: 50 MG, 1X/DAY
     Route: 048
     Dates: start: 20160714, end: 20160912
  14. ZOMIG [Concomitant]
     Active Substance: ZOLMITRIPTAN
     Indication: MIGRAINE
     Dosage: 2.5 MG, AS NEEDED
     Route: 048
     Dates: end: 20161115

REACTIONS (8)
  - Cardiomyopathy [Recovered/Resolved]
  - Cardiac failure congestive [Recovered/Resolved]
  - Fatigue [Recovering/Resolving]
  - Abscess neck [Unknown]
  - Death [Fatal]
  - Dehydration [Unknown]
  - Pleural effusion [Unknown]
  - Musculoskeletal discomfort [Unknown]

NARRATIVE: CASE EVENT DATE: 20160912
